FAERS Safety Report 5729389-8 (Version None)
Quarter: 2008Q2

REPORT INFORMATION
  Report Type: 
  Country: None (occurrence: None)
  Receive Date: 20080501
  Receipt Date: 20080423
  Transmission Date: 20081010
  Serious: Yes (Death, Hospitalization)
  Sender: FDA-Public Use
  Company Number: 2008US001158

PATIENT
  Age: 61 Year
  Sex: Male
  Weight: 50.8 kg

DRUGS (8)
  1. PROGRAF [Suspect]
     Indication: RENAL TRANSPLANT
     Dosage: 1 MG, UIS/QD, ORAL
     Route: 048
     Dates: start: 20060117
  2. PROGRAF [Suspect]
     Indication: RENAL TRANSPLANT
     Dosage: 1 MG, UIS/QD, ORAL
     Route: 048
     Dates: start: 20071217
  3. CATAPRES [Concomitant]
  4. TOPROL-XL [Concomitant]
  5. ZAROXOLYN [Concomitant]
  6. COUMADIN [Concomitant]
  7. FUROSEMIDE (FUROSEMIDE SODIUM) [Concomitant]
  8. PROCRIT [Concomitant]

REACTIONS (2)
  - CARDIAC ARREST [None]
  - PNEUMONIA ASPIRATION [None]
